FAERS Safety Report 7690495-2 (Version None)
Quarter: 2011Q3

REPORT INFORMATION
  Report Type: 
  Country: None (occurrence: None)
  Receive Date: 20110817
  Receipt Date: 20110817
  Transmission Date: 20111222
  Serious: Yes (Hospitalization)
  Sender: FDA-Public Use
  Company Number: None

PATIENT
  Age: 53 Year
  Sex: Male
  Weight: 88.7 kg

DRUGS (1)
  1. CEFAZOLIN [Suspect]
     Indication: INTERVERTEBRAL DISCITIS
     Dates: start: 20110131, end: 20110225

REACTIONS (3)
  - AZOTAEMIA [None]
  - TUBULOINTERSTITIAL NEPHRITIS [None]
  - HYPERKALAEMIA [None]
